FAERS Safety Report 16483671 (Version 1)
Quarter: 2020Q3

REPORT INFORMATION
  Report Type: Report from Study
  Country: TR (occurrence: TR)
  Receive Date: 20190627
  Receipt Date: 20190627
  Transmission Date: 20201105
  Serious: Yes (Death, Hospitalization, Other)
  Sender: FDA-Public Use
  Company Number: TR-PFIZER INC-2019208928

PATIENT
  Age: 58 Year
  Sex: Female
  Weight: 52 kg

DRUGS (3)
  1. TALAZOPARIB. [Suspect]
     Active Substance: TALAZOPARIB
     Indication: GENE MUTATION
     Dosage: 1 DF, 1X/DAY
     Dates: start: 20190328, end: 20190426
  2. ZOLEDRONIC ACID [Concomitant]
     Active Substance: ZOLEDRONIC ACID
     Dosage: UNK
  3. TALAZOPARIB. [Suspect]
     Active Substance: TALAZOPARIB
     Dosage: 1 DF, 1X/DAY
     Dates: start: 20190429, end: 20190503

REACTIONS (7)
  - Vaginal haemorrhage [Unknown]
  - Pancytopenia [Unknown]
  - Hypercalcaemia of malignancy [Unknown]
  - Respiratory failure [Fatal]
  - Respiratory tract infection [Fatal]
  - Neoplasm progression [Fatal]
  - Thrombocytopenia [Unknown]

NARRATIVE: CASE EVENT DATE: 20190426
